FAERS Safety Report 22073523 (Version 3)
Quarter: 2023Q2

REPORT INFORMATION
  Report Type: Report from Study
  Country: BR (occurrence: BR)
  Receive Date: 20230308
  Receipt Date: 20230409
  Transmission Date: 20230721
  Serious: Yes (Other)
  Sender: FDA-Public Use
  Company Number: BR-002147023-NVSC2023BR050232

PATIENT
  Age: 62 Year
  Sex: Female
  Weight: 67 kg

DRUGS (10)
  1. KISQALI [Suspect]
     Active Substance: RIBOCICLIB
     Indication: Breast cancer
     Dosage: 3 DOSAGE FORM, QD (3 TABLETS A DAY, FOR 21 DAYS, WITH A PAUSE FOR 7 DAYS)
     Route: 065
  2. KISQALI [Suspect]
     Active Substance: RIBOCICLIB
     Dosage: 2 DOSAGE FORM, QD (FOR 21 DAYS AND PAUSE FOR 7 DAYS)
     Route: 065
     Dates: start: 20230201
  3. MORPHINE SULFATE [Concomitant]
     Active Substance: MORPHINE SULFATE
     Indication: Pain
     Dosage: 10 MG
     Route: 048
     Dates: start: 202212
  4. GABAPENTIN [Concomitant]
     Active Substance: GABAPENTIN
     Indication: Pain
     Dosage: 300 MG
     Route: 048
     Dates: start: 202201
  5. LETROZOLE [Concomitant]
     Active Substance: LETROZOLE
     Indication: Breast cancer
     Dosage: 2.5 MG
     Route: 048
     Dates: start: 20230201
  6. ENALAPRIL [Concomitant]
     Active Substance: ENALAPRIL
     Indication: Hypertension
     Dosage: 10 MG
     Route: 048
     Dates: start: 2013
  7. TIMOLOL [Concomitant]
     Active Substance: TIMOLOL
     Indication: Ocular discomfort
     Dosage: 0.5 % (DOES NOT REMEMBER START DATE)
     Route: 031
  8. RAPILAX [Concomitant]
     Indication: Constipation
     Dosage: 7.5 MILLIGRAM PER MILLILITRE
     Route: 048
     Dates: start: 202301
  9. ONDANSETRON [Concomitant]
     Active Substance: ONDANSETRON
     Indication: Nausea
     Dosage: 8 MG
     Route: 048
     Dates: start: 202301
  10. ONDANSETRON [Concomitant]
     Active Substance: ONDANSETRON
     Indication: Vomiting

REACTIONS (2)
  - Arrhythmia [Recovered/Resolved]
  - Electrocardiogram QT prolonged [Recovered/Resolved]

NARRATIVE: CASE EVENT DATE: 20230214
